FAERS Safety Report 24390413 (Version 1)
Quarter: 2024Q4

REPORT INFORMATION
  Report Type: Spontaneous
  Country: US (occurrence: US)
  Receive Date: 20241003
  Receipt Date: 20241003
  Transmission Date: 20250115
  Serious: Yes (Hospitalization)
  Sender: ACCORD
  Company Number: US-MLMSERVICE-20240918-PI193333-00218-4

PATIENT
  Age: 8 Decade
  Sex: Female

DRUGS (6)
  1. METHOTREXATE [Suspect]
     Active Substance: METHOTREXATE
     Indication: B precursor type acute leukaemia
     Dosage: WEANED TO ONCE WEEKLY TRIPLE THERAPY, ALSO RECEIVED TWO TIMES PER WEEK TRIPLE THERAPY
     Route: 037
  2. CYTARABINE [Concomitant]
     Active Substance: CYTARABINE
     Indication: B precursor type acute leukaemia
     Dosage: WEANED TO ONCE WEEKLY TRIPLE THERAPY, ALSO RECEIVED TWO TIMES PER WEEK TRIPLE THERAPY
     Route: 037
  3. CYTARABINE [Concomitant]
     Active Substance: CYTARABINE
     Indication: Nervous system disorder
     Dosage: WEANED TO ONCE WEEKLY TRIPLE THERAPY, ALSO RECEIVED TWO TIMES PER WEEK TRIPLE THERAPY
     Route: 037
  4. METHOTREXATE [Suspect]
     Active Substance: METHOTREXATE
     Indication: Leukaemia recurrent
     Dosage: WEANED TO ONCE WEEKLY TRIPLE THERAPY, ALSO RECEIVED TWO TIMES PER WEEK TRIPLE THERAPY
     Route: 037
  5. CYTARABINE [Concomitant]
     Active Substance: CYTARABINE
     Indication: Leukaemia recurrent
     Dosage: WEANED TO ONCE WEEKLY TRIPLE THERAPY, ALSO RECEIVED TWO TIMES PER WEEK TRIPLE THERAPY
     Route: 037
  6. METHOTREXATE [Suspect]
     Active Substance: METHOTREXATE
     Indication: Nervous system disorder
     Dosage: WEANED TO ONCE WEEKLY TRIPLE THERAPY, ALSO RECEIVED TWO TIMES PER WEEK TRIPLE THERAPY
     Route: 037

REACTIONS (1)
  - Transient ischaemic attack [Recovering/Resolving]
